FAERS Safety Report 9921208 (Version 1)
Quarter: 2014Q1

REPORT INFORMATION
  Report Type: Spontaneous
  Country: US (occurrence: None)
  Receive Date: 20140221
  Receipt Date: 20140221
  Transmission Date: 20141002
  Serious: Yes (Other)
  Sender: FDA-Public Use
  Company Number: None

PATIENT
  Age: 40 Year
  Sex: Female
  Weight: 110.68 kg

DRUGS (6)
  1. SOFOSBUVIR [Suspect]
  2. INTERFERON [Concomitant]
  3. RIBAVIRIN [Concomitant]
  4. SOFOSBUVIR [Concomitant]
  5. WARFARIN [Concomitant]
  6. HEPARIN [Concomitant]

REACTIONS (2)
  - Factor V Leiden mutation [None]
  - Thrombophlebitis superficial [None]
